FAERS Safety Report 24596172 (Version 2)
Quarter: 2024Q4

REPORT INFORMATION
  Report Type: Spontaneous
  Country: US (occurrence: US)
  Receive Date: 20241110
  Receipt Date: 20241112
  Transmission Date: 20250114
  Serious: No
  Sender: SANDOZ
  Company Number: US-ROCHE-10000121478

PATIENT
  Age: 42 Year
  Sex: Female
  Weight: 68.94 kg

DRUGS (13)
  1. ANASTROZOLE [Suspect]
     Active Substance: ANASTROZOLE
     Indication: Hormone therapy
     Dosage: 1 MG, QD
     Route: 048
  2. XOLAIR [Suspect]
     Active Substance: OMALIZUMAB
     Indication: Photosensitivity reaction
     Dosage: UNK, QMO, VACCINE
     Route: 030
     Dates: start: 20240913
  3. CYCLOBENZAPRINE [Concomitant]
     Active Substance: CYCLOBENZAPRINE
     Indication: Pain in jaw
     Dosage: 10 MG, QD, AT NIGHT, TABLET
     Route: 048
     Dates: start: 202306
  4. FAMOTIDINE [Concomitant]
     Active Substance: FAMOTIDINE
     Indication: Gastrooesophageal reflux disease
     Dosage: 40 MG, Q12H, TABELT
     Route: 048
  5. FAMOTIDINE [Concomitant]
     Active Substance: FAMOTIDINE
     Indication: Hypersensitivity
  6. FEXOFENADINE HYDROCHLORIDE [Concomitant]
     Active Substance: FEXOFENADINE HYDROCHLORIDE
     Indication: Product used for unknown indication
     Dosage: 360 MG, Q12H, TABLET
     Route: 048
     Dates: start: 20240710
  7. HYDROXYZINE HYDROCHLORIDE [Concomitant]
     Active Substance: HYDROXYZINE HYDROCHLORIDE
     Indication: Pruritus
     Dosage: 25 MG, PRN, (TABLET)
     Route: 048
     Dates: start: 202312
  8. METHOCARBAMOL [Concomitant]
     Active Substance: METHOCARBAMOL
     Indication: Hypotonia
     Dosage: 500 MG, Q6H, 1-2 EVERY 6 HOURS- TAKES 4 A DAY, TABLET
     Route: 048
     Dates: start: 202306
  9. METHOCARBAMOL [Concomitant]
     Active Substance: METHOCARBAMOL
     Indication: Pain in jaw
  10. MONTELUKAST [Concomitant]
     Active Substance: MONTELUKAST
     Indication: Urticaria
     Dosage: 1 MG, QD, TABLET
     Route: 048
     Dates: start: 20240731
  11. REFRESH CELLUVISC [Concomitant]
     Active Substance: CARBOXYMETHYLCELLULOSE SODIUM
     Indication: Product used for unknown indication
     Dosage: 1 %, Q12H,1 DROP EACH EYE AT NIGHT, AND MORNING
     Route: 031
     Dates: start: 202308
  12. VANICREAM [Concomitant]
     Active Substance: TITANIUM DIOXIDE\ZINC OXIDE
     Indication: Product used for unknown indication
     Dosage: UNK, PRN, CREAM, TOPICAL
     Route: 065
     Dates: start: 20240623
  13. VITAMIN D3 [Concomitant]
     Active Substance: CHOLECALCIFEROL
     Indication: Product used for unknown indication
     Dosage: 100 UG, QD (CHEWABLE TABLET)
     Route: 048
     Dates: start: 202301

REACTIONS (11)
  - Epistaxis [Not Recovered/Not Resolved]
  - Pain [Recovered/Resolved]
  - Pyrexia [Recovered/Resolved]
  - Pharyngeal swelling [Recovered/Resolved]
  - Swollen tongue [Recovered/Resolved]
  - Mouth swelling [Recovered/Resolved]
  - Diarrhoea [Recovered/Resolved]
  - Vomiting [Recovered/Resolved]
  - Nausea [Recovered/Resolved]
  - Off label use [Unknown]
  - Off label use [Unknown]

NARRATIVE: CASE EVENT DATE: 20240913
